FAERS Safety Report 8125090-4 (Version None)
Quarter: 2012Q1

REPORT INFORMATION
  Report Type: 
  Country: None (occurrence: None)
  Receive Date: 20120209
  Receipt Date: 20120127
  Transmission Date: 20120608
  Serious: Yes (Hospitalization)
  Sender: FDA-Public Use
  Company Number: JP-ROCHE-GNE314696

PATIENT
  Sex: Female

DRUGS (6)
  1. RANIBIZUMAB [Suspect]
     Indication: RETINAL VASCULAR DISORDER
     Dosage: IN LEFT EYE
     Route: 050
     Dates: start: 20091202
  2. VERTEPORFIN [Suspect]
     Route: 042
     Dates: start: 20110909
  3. VERTEPORFIN [Suspect]
     Indication: RETINAL VASCULAR DISORDER
     Route: 042
  4. LEVOFLOXACIN [Concomitant]
     Dates: start: 20090101
  5. RANIBIZUMAB [Suspect]
     Route: 050
     Dates: start: 20091209, end: 20091209
  6. RANIBIZUMAB [Suspect]
     Route: 050
     Dates: start: 20111209

REACTIONS (2)
  - INAPPROPRIATE SCHEDULE OF DRUG ADMINISTRATION [None]
  - RETINAL PIGMENT EPITHELIAL TEAR [None]
